FAERS Safety Report 20480819 (Version 2)
Quarter: 2022Q1

REPORT INFORMATION
  Report Type: Spontaneous
  Country: US (occurrence: US)
  Receive Date: 20220216
  Receipt Date: 20220309
  Transmission Date: 20220423
  Serious: Yes (Other)
  Sender: FDA-Public Use
  Company Number: US-PFIZER INC-202200196982

PATIENT
  Age: 59 Year
  Sex: Male

DRUGS (1)
  1. VIAGRA [Suspect]
     Active Substance: SILDENAFIL CITRATE
     Indication: Erectile dysfunction
     Dosage: 2 DF, DAILY (2 VIAGRA PILLS AT ABOUT 4 ^O^ CLOCK IN AFTERNOON)
     Dates: start: 20220201

REACTIONS (2)
  - Inappropriate schedule of product administration [Unknown]
  - Erection increased [Unknown]

NARRATIVE: CASE EVENT DATE: 20220201
